FAERS Safety Report 17372011 (Version 1)
Quarter: 2020Q1

REPORT INFORMATION
  Report Type: Report from Study
  Country: US (occurrence: US)
  Receive Date: 20200205
  Receipt Date: 20200205
  Transmission Date: 20200409
  Serious: Yes (Death, Other)
  Sender: FDA-Public Use
  Company Number: US-GILEAD-2020-0449812

PATIENT
  Age: 48 Year
  Sex: Female

DRUGS (4)
  1. TRIKAFTA [Concomitant]
     Active Substance: ELEXACAFTOR\IVACAFTOR\TEZACAFTOR
  2. PULMOZYME [Concomitant]
     Active Substance: DORNASE ALFA
  3. KALYDECO [Concomitant]
     Active Substance: IVACAFTOR
  4. AZTREONAM LYSINE [Suspect]
     Active Substance: AZTREONAM LYSINE
     Indication: CYSTIC FIBROSIS LUNG
     Dosage: 75 MG, TID VIA ALTERA NEBULIZER THREE TIMES A DAY FOR 28 DAYS ON AND 28 DAYS OFF
     Route: 055

REACTIONS (1)
  - Death [Fatal]

NARRATIVE: CASE EVENT DATE: 20200201
